FAERS Safety Report 16776654 (Version 1)
Quarter: 2019Q3

REPORT INFORMATION
  Report Type: Spontaneous
  Country: PL (occurrence: PL)
  Receive Date: 20190905
  Receipt Date: 20190905
  Transmission Date: 20191005
  Serious: Yes (Other)
  Sender: FDA-Public Use
  Company Number: PL-SA-2019SA241151

PATIENT
  Sex: Female

DRUGS (1)
  1. PLAVIX [Suspect]
     Active Substance: CLOPIDOGREL BISULFATE
     Dosage: 75 MG, UNK
     Route: 065
     Dates: start: 20150930

REACTIONS (17)
  - Dizziness [Unknown]
  - Pharyngeal disorder [Unknown]
  - Catarrh [Unknown]
  - Disturbance in attention [Unknown]
  - Abdominal pain upper [Unknown]
  - Chest pain [Unknown]
  - Pyrexia [Unknown]
  - Feeling of body temperature change [Unknown]
  - Muscle fatigue [Unknown]
  - Dry throat [Unknown]
  - Nausea [Unknown]
  - Headache [Unknown]
  - Speech disorder [Unknown]
  - Erythema [Unknown]
  - Dyspnoea [Unknown]
  - Rash [Unknown]
  - Asthenia [Unknown]

NARRATIVE: CASE EVENT DATE: 20150930
